FAERS Safety Report 6217843-4 (Version None)
Quarter: 2009Q2

REPORT INFORMATION
  Report Type: 
  Country: None (occurrence: None)
  Receive Date: 20090608
  Receipt Date: 20090601
  Transmission Date: 20091009
  Serious: Yes (Other)
  Sender: FDA-Public Use
  Company Number: GB-ASTRAZENECA-2009GB01116

PATIENT
  Age: 49 Year
  Sex: Female
  Weight: 65 kg

DRUGS (14)
  1. SEROQUEL [Suspect]
     Indication: PSYCHOTIC DISORDER
     Route: 048
     Dates: start: 20080101
  2. SEROQUEL [Suspect]
     Indication: MANIA
     Route: 048
     Dates: start: 20080101
  3. SEROQUEL [Suspect]
     Route: 048
     Dates: end: 20090401
  4. SEROQUEL [Suspect]
     Route: 048
     Dates: end: 20090401
  5. EPILIM CHRONO [Suspect]
     Indication: PSYCHOTIC DISORDER
     Route: 048
     Dates: start: 20060411, end: 20081201
  6. EPILIM CHRONO [Suspect]
     Indication: MANIA
     Route: 048
     Dates: start: 20060411, end: 20081201
  7. EPILIM CHRONO [Suspect]
     Route: 048
     Dates: start: 20060411, end: 20081201
  8. EPILIM CHRONO [Suspect]
     Route: 048
     Dates: start: 20060411, end: 20081201
  9. CLONAZEPAM [Concomitant]
     Indication: MANIA
     Route: 048
     Dates: start: 20050101
  10. LEVOTHYROXINE SODIUM [Concomitant]
     Indication: HYPOTHYROIDISM
     Route: 048
     Dates: start: 20061101
  11. ANTIBIOTIC TREATMENT [Concomitant]
     Indication: LOWER RESPIRATORY TRACT INFECTION
     Dates: start: 20080101
  12. ANTIBIOTIC TREATMENT [Concomitant]
     Indication: LUNG ABSCESS
     Dates: start: 20080101
  13. LITHIUM CARBONATE [Concomitant]
     Dates: end: 20070101
  14. LITHIUM CARBONATE [Concomitant]
     Dates: start: 20090101

REACTIONS (2)
  - NEUTROPENIA [None]
  - THYROID DISORDER [None]
